FAERS Safety Report 16417408 (Version 1)
Quarter: 2019Q2

REPORT INFORMATION
  Report Type: Spontaneous
  Country: DE (occurrence: DE)
  Receive Date: 20190611
  Receipt Date: 20190611
  Transmission Date: 20190711
  Serious: Yes (Other)
  Sender: FDA-Public Use
  Company Number: PHHY2019DE132955

PATIENT
  Sex: Male

DRUGS (1)
  1. VOTRIENT [Suspect]
     Active Substance: PAZOPANIB HYDROCHLORIDE
     Indication: PLEURAL NEOPLASM
     Route: 065

REACTIONS (3)
  - Product use in unapproved indication [Unknown]
  - Second primary malignancy [Unknown]
  - Bladder cancer [Unknown]
